FAERS Safety Report 7621622-0 (Version None)
Quarter: 2011Q3

REPORT INFORMATION
  Report Type: 
  Country: None (occurrence: None)
  Receive Date: 20110719
  Receipt Date: 20110706
  Transmission Date: 20111222
  Serious: Yes (Hospitalization, Disabling)
  Sender: FDA-Public Use
  Company Number: DE-GENENTECH-296651

PATIENT
  Sex: Male
  Weight: 68 kg

DRUGS (19)
  1. METHYLPREDNISOLONE SODIUM SUCCINATE [Suspect]
     Indication: RHEUMATOID ARTHRITIS
     Dosage: 125 MG, UNK
     Route: 042
     Dates: start: 20090824, end: 20090907
  2. RAMIPRIL [Concomitant]
     Indication: HYPERTENSION
     Dosage: UNK
     Route: 048
     Dates: start: 20060101
  3. FALITHROM [Concomitant]
     Indication: PRODUCT USED FOR UNKNOWN INDICATION
     Dosage: UNK
  4. PREDNISOLONE [Suspect]
     Indication: RHEUMATOID ARTHRITIS
     Dosage: UNK TABLET, UNK
     Route: 048
  5. CARBAMAZEPINE [Concomitant]
     Indication: PRODUCT USED FOR UNKNOWN INDICATION
  6. ACETAMINOPHEN [Concomitant]
     Indication: PREMEDICATION
     Dosage: 1000 MG, UNK
     Route: 048
     Dates: start: 20090824
  7. ALLOPURINOL [Concomitant]
     Indication: PRODUCT USED FOR UNKNOWN INDICATION
     Dosage: UNK
  8. OXYCODONE HCL [Concomitant]
     Indication: PRODUCT USED FOR UNKNOWN INDICATION
  9. IBUPROFEN [Concomitant]
     Indication: PRODUCT USED FOR UNKNOWN INDICATION
  10. FRAXIPARIN [Concomitant]
     Indication: PRODUCT USED FOR UNKNOWN INDICATION
     Route: 058
  11. VOLTAREN [Concomitant]
     Indication: PRODUCT USED FOR UNKNOWN INDICATION
     Dosage: 150 MG, QD
  12. FENISTIL [Concomitant]
     Indication: PREMEDICATION
     Dosage: 1 DF, UNK
     Route: 042
     Dates: start: 20090824
  13. METOPROLOL TARTRATE [Concomitant]
     Indication: HYPERTENSION
     Dosage: UNK
     Route: 048
     Dates: start: 20060101
  14. TORSEMIDE [Concomitant]
     Indication: PRODUCT USED FOR UNKNOWN INDICATION
  15. RITUXIMAB [Suspect]
     Indication: RHEUMATOID ARTHRITIS
     Dosage: 1000 MG, UNK
     Route: 042
     Dates: start: 20070612, end: 20091201
  16. PANTOPRAZOLE [Concomitant]
     Indication: PRODUCT USED FOR UNKNOWN INDICATION
  17. TOCILIZUMAB [Suspect]
     Indication: RHEUMATOID ARTHRITIS
     Dosage: 400 MG, 4/WEEK
     Route: 042
     Dates: start: 20090505, end: 20090806
  18. OMEPRAZOLE [Concomitant]
     Indication: PRODUCT USED FOR UNKNOWN INDICATION
     Dosage: 20 MG, QD
  19. COLCHICUM [Concomitant]
     Indication: PRODUCT USED FOR UNKNOWN INDICATION

REACTIONS (9)
  - URINARY TRACT INFECTION [None]
  - URETERIC STENOSIS [None]
  - RENAL FAILURE ACUTE [None]
  - HYDRONEPHROSIS [None]
  - PROSTATE INFECTION [None]
  - INFECTED SKIN ULCER [None]
  - OSTEOMYELITIS [None]
  - DEHYDRATION [None]
  - INCONTINENCE [None]
